FAERS Safety Report 12397478 (Version 2)
Quarter: 2016Q3

REPORT INFORMATION
  Report Type: Spontaneous
  Country: US (occurrence: US)
  Receive Date: 20160524
  Receipt Date: 20160829
  Transmission Date: 20161109
  Serious: No
  Sender: FDA-Public Use
  Company Number: US-GLAXOSMITHKLINE-US2016GSK065923

PATIENT
  Age: 53 Year
  Sex: Female

DRUGS (2)
  1. TANZEUM [Suspect]
     Active Substance: ALBIGLUTIDE
     Indication: TYPE 2 DIABETES MELLITUS
     Dosage: 50 MG, WE
     Dates: start: 2015
  2. TANZEUM [Suspect]
     Active Substance: ALBIGLUTIDE
     Dosage: 50 MG, WE
     Route: 042
     Dates: start: 201602

REACTIONS (10)
  - Device leakage [Unknown]
  - Early satiety [Unknown]
  - Device use error [Unknown]
  - Injection site erythema [Unknown]
  - Pruritus [Recovered/Resolved]
  - Accidental exposure to product [Unknown]
  - Injection site reaction [Unknown]
  - Underdose [Unknown]
  - Weight decreased [Unknown]
  - Therapeutic response unexpected [Unknown]

NARRATIVE: CASE EVENT DATE: 20160430
